FAERS Safety Report 13831205 (Version 2)
Quarter: 2017Q4

REPORT INFORMATION
  Report Type: Report from Study
  Country: US (occurrence: US)
  Receive Date: 20170803
  Receipt Date: 20171020
  Transmission Date: 20180320
  Serious: Yes (Other)
  Sender: FDA-Public Use
  Company Number: US-APOPHARMA-2017AP016200

PATIENT
  Age: 62 Year
  Sex: Female
  Weight: 95 kg

DRUGS (4)
  1. FERRIPROX [Suspect]
     Active Substance: DEFERIPRONE
     Indication: DURAL TEAR
  2. NAPROXEN. [Concomitant]
     Active Substance: NAPROXEN
     Indication: PRODUCT USED FOR UNKNOWN INDICATION
     Dosage: UNK, UNKNOWN
     Route: 065
  3. FERRIPROX [Suspect]
     Active Substance: DEFERIPRONE
     Indication: SUBARACHNOID HAEMORRHAGE
     Dosage: 11 MG/KG, BID
     Route: 048
     Dates: start: 20120825, end: 20170721
  4. GABAPENTIN. [Concomitant]
     Active Substance: GABAPENTIN
     Indication: PRODUCT USED FOR UNKNOWN INDICATION
     Dosage: UNK, UNKNOWN
     Route: 065

REACTIONS (5)
  - Neutrophil count decreased [Recovering/Resolving]
  - Night sweats [Recovering/Resolving]
  - Vertigo [Recovering/Resolving]
  - Chills [Recovering/Resolving]
  - Asthenia [Recovering/Resolving]

NARRATIVE: CASE EVENT DATE: 20170721
